FAERS Safety Report 15501850 (Version 1)
Quarter: 2018Q4

REPORT INFORMATION
  Report Type: Report from Study
  Country: US (occurrence: US)
  Receive Date: 20181015
  Receipt Date: 20181015
  Transmission Date: 20190205
  Serious: No
  Sender: FDA-Public Use
  Company Number: US-AMGEN-USASL2018003728

PATIENT
  Age: 71 Year
  Sex: Female

DRUGS (1)
  1. PROCRIT [Suspect]
     Active Substance: ERYTHROPOIETIN
     Indication: PRODUCT USED FOR UNKNOWN INDICATION
     Dosage: UNK
     Route: 065

REACTIONS (13)
  - Urine protein/creatinine ratio increased [Unknown]
  - Haematocrit decreased [Unknown]
  - Light chain analysis abnormal [Unknown]
  - Creatinine renal clearance decreased [Unknown]
  - Alpha 1 globulin increased [Unknown]
  - Glomerular filtration rate decreased [Unknown]
  - Serum ferritin increased [Unknown]
  - Blood creatinine increased [Unknown]
  - Haemoglobin decreased [Unknown]
  - Light chain analysis increased [Unknown]
  - Protein urine present [Unknown]
  - Carbon dioxide decreased [Unknown]
  - Blood glucose increased [Unknown]

NARRATIVE: CASE EVENT DATE: 20171213
